FAERS Safety Report 9947115 (Version 1)
Quarter: 2014Q1

REPORT INFORMATION
  Report Type: Report from Study
  Country: US (occurrence: US)
  Receive Date: 20140303
  Receipt Date: 20140303
  Transmission Date: 20141002
  Serious: No
  Sender: FDA-Public Use
  Company Number: US-ABBVIE-13P-163-1064615-00

PATIENT
  Age: 80 Year
  Sex: Female

DRUGS (3)
  1. HUMIRA [Suspect]
     Indication: PSORIASIS
     Dates: start: 201301
  2. AVAPRO [Concomitant]
     Indication: HYPERTENSION
     Dosage: 150 MG DAILY
  3. LIPITOR [Concomitant]
     Indication: BLOOD CHOLESTEROL INCREASED
     Dosage: 20 MG DAILY

REACTIONS (3)
  - Injection site pain [Unknown]
  - Wrong technique in drug usage process [Unknown]
  - Injection site haemorrhage [Unknown]
